FAERS Safety Report 11533039 (Version 1)
Quarter: 2015Q3

REPORT INFORMATION
  Report Type: Report from Study
  Country: DE (occurrence: DE)
  Receive Date: 20150921
  Receipt Date: 20150921
  Transmission Date: 20151125
  Serious: Yes (Death)
  Sender: FDA-Public Use
  Company Number: DE-ABBVIE-15P-062-1465059-00

PATIENT
  Sex: Male

DRUGS (1)
  1. DUODOPA [Suspect]
     Active Substance: CARBIDOPA\LEVODOPA
     Indication: PARKINSON^S DISEASE
     Dosage: MD 9.2ML, CRD 2.4ML/H, ED 0.8ML
     Route: 050
     Dates: start: 20080805, end: 20150916

REACTIONS (1)
  - Pneumonia [Fatal]
